FAERS Safety Report 21794055 (Version 1)
Quarter: 2022Q4

REPORT INFORMATION
  Report Type: Spontaneous
  Country: US (occurrence: None)
  Receive Date: 20221229
  Receipt Date: 20221229
  Transmission Date: 20230113
  Serious: Yes (Hospitalization, Other)
  Sender: FDA-Public Use
  Company Number: US-FARMAPROD-202212-2693

PATIENT
  Sex: Female

DRUGS (21)
  1. OXERVATE [Suspect]
     Active Substance: CENEGERMIN-BKBJ
     Indication: Neurotrophic keratopathy
     Route: 047
     Dates: start: 20221212
  2. OXERVATE [Suspect]
     Active Substance: CENEGERMIN-BKBJ
     Indication: Hypoaesthesia eye
  3. OXERVATE [Suspect]
     Active Substance: CENEGERMIN-BKBJ
     Indication: Keratitis
  4. SYNTHROID [Concomitant]
     Active Substance: LEVOTHYROXINE SODIUM
  5. LISINOPRIL [Concomitant]
     Active Substance: LISINOPRIL
  6. FERRIC POLYSACCHARIDE COMPLEX [Concomitant]
     Active Substance: FERRIC POLYSACCHARIDE COMPLEX
  7. ASPIRIN [Concomitant]
     Active Substance: ASPIRIN
  8. ATORVASTATIN CALCIUM [Concomitant]
     Active Substance: ATORVASTATIN CALCIUM
  9. MONTELUKAST SODIUM [Concomitant]
     Active Substance: MONTELUKAST SODIUM
  10. ALENDRONATE SODIUM [Concomitant]
     Active Substance: ALENDRONATE SODIUM
  11. ELIQUIS [Concomitant]
     Active Substance: APIXABAN
  12. DESLORATADINE [Concomitant]
     Active Substance: DESLORATADINE
  13. PANTOPRAZOLE SODIUM [Concomitant]
     Active Substance: PANTOPRAZOLE SODIUM
     Dosage: DELAYED RELEASE
  14. MECLIZINE HYDROCHLORIDE [Concomitant]
     Active Substance: MECLIZINE HYDROCHLORIDE
  15. CLARINEX [Concomitant]
     Active Substance: DESLORATADINE
  16. SODIUM CHLORIDE [Concomitant]
     Active Substance: SODIUM CHLORIDE
  17. AZOPT [Concomitant]
     Active Substance: BRINZOLAMIDE
  18. ALPHAGAN P [Concomitant]
     Active Substance: BRIMONIDINE TARTRATE
  19. VITAMIN D3 [Concomitant]
     Active Substance: CHOLECALCIFEROL
     Dosage: 100000 / GRAM POWDER
  20. LASIX [Concomitant]
     Active Substance: FUROSEMIDE
  21. AMIODARONE HYDROCHLORIDE [Concomitant]
     Active Substance: AMIODARONE HYDROCHLORIDE

REACTIONS (1)
  - Hip fracture [Unknown]
